FAERS Safety Report 10012951 (Version 1)
Quarter: 2014Q1

REPORT INFORMATION
  Report Type: Spontaneous
  Country: FR (occurrence: FR)
  Receive Date: 20140314
  Receipt Date: 20140314
  Transmission Date: 20141002
  Serious: Yes (Other)
  Sender: FDA-Public Use
  Company Number: PHHY2014FR028812

PATIENT
  Age: 67 Year
  Sex: Female

DRUGS (3)
  1. FUROSEMIDE [Suspect]
     Route: 042
  2. METHYLPREDNISOLONE [Suspect]
     Indication: NEPHROTIC SYNDROME
     Dosage: 500 MG PER DAY
     Route: 042
  3. PREDNISONE [Suspect]
     Indication: NEPHROTIC SYNDROME
     Dosage: 1 MG/KG/DAY
     Route: 048

REACTIONS (4)
  - Renal failure [Unknown]
  - Hypovolaemia [Unknown]
  - Renal impairment [Recovering/Resolving]
  - No therapeutic response [Unknown]
